FAERS Safety Report 5765581-4 (Version None)
Quarter: 2008Q2

REPORT INFORMATION
  Report Type: 
  Country: None (occurrence: None)
  Receive Date: 20080605
  Receipt Date: 20080527
  Transmission Date: 20081010
  Serious: Yes (Life-Threatening, Other)
  Sender: FDA-Public Use
  Company Number: 2008013762

PATIENT
  Age: 69 Year
  Sex: Male
  Weight: 68 kg

DRUGS (7)
  1. CETIRIZINE HCL [Suspect]
     Indication: PRURITUS
     Dosage: 10 MG 1/1 DAYS, ORAL
     Route: 048
     Dates: start: 20060523
  2. AMBISOME [Suspect]
     Indication: SYSTEMIC CANDIDA
     Dosage: 1 MG/KG, THEN 3 MG/KG INTRAVENOUS
     Route: 042
     Dates: start: 20060422, end: 20060602
  3. AMLODIPINE [Suspect]
     Indication: HYPERTENSION
     Dosage: 5 MG 1/1 DAYS, ORAL
     Route: 048
     Dates: end: 20060525
  4. CALCICHEW (CALCIUM CARBONATE) [Concomitant]
  5. DARBEPOETIN ALFA (DARBEPOETIN ALFA) [Concomitant]
  6. OMEPRAZOLE [Concomitant]
  7. SODIUM CARBONATE (SODIUM BICARBONATE) [Concomitant]

REACTIONS (5)
  - ARRHYTHMIA SUPRAVENTRICULAR [None]
  - ATRIAL FLUTTER [None]
  - BLOOD MAGNESIUM DECREASED [None]
  - BLOOD PRESSURE DECREASED [None]
  - HAEMOGLOBIN DECREASED [None]
